FAERS Safety Report 20510332 (Version 1)
Quarter: 2022Q1

REPORT INFORMATION
  Report Type: Spontaneous
  Country: US (occurrence: US)
  Receive Date: 20220224
  Receipt Date: 20220224
  Transmission Date: 20220423
  Serious: No
  Sender: FDA-Public Use
  Company Number: US-PFIZER INC-2021582858

PATIENT
  Age: 3 Year
  Sex: Male
  Weight: 14.97 kg

DRUGS (1)
  1. GENOTROPIN [Suspect]
     Active Substance: SOMATROPIN
     Indication: Growth hormone deficiency
     Dosage: 0.4 MG, 1X/DAY, ROTATE BETWEEN THIGHS AND BUTTOCKS EVERY NIGHT
     Dates: start: 2020, end: 20210520

REACTIONS (3)
  - Drug dose omission by device [Unknown]
  - Poor quality device used [Unknown]
  - Device breakage [Unknown]

NARRATIVE: CASE EVENT DATE: 20210501
